FAERS Safety Report 7422551-8 (Version None)
Quarter: 2011Q2

REPORT INFORMATION
  Report Type: 
  Country: None (occurrence: None)
  Receive Date: 20110408
  Receipt Date: 20110331
  Transmission Date: 20111010
  Serious: Yes (Hospitalization)
  Sender: FDA-Public Use
  Company Number: CAP11000019

PATIENT
  Age: 78 Year
  Sex: Female
  Weight: 45.4 kg

DRUGS (2)
  1. ACTONEL [Suspect]
     Indication: OSTEOPOROSIS POSTMENOPAUSAL
     Dosage: 150 MG ONCE ONLY, ORAL
     Route: 048
     Dates: start: 20091105, end: 20091105
  2. ACTONEL [Suspect]
     Indication: OSTEOPOROSIS POSTMENOPAUSAL
     Dosage: 35 MG ONCE WEEKLY, ORAL
     Route: 048

REACTIONS (28)
  - FATIGUE [None]
  - EYELID OEDEMA [None]
  - C-REACTIVE PROTEIN INCREASED [None]
  - EYE SWELLING [None]
  - EYE PAIN [None]
  - VISUAL IMPAIRMENT [None]
  - ERYTHEMA OF EYELID [None]
  - ENTEROBACTER TEST POSITIVE [None]
  - DIARRHOEA [None]
  - DIZZINESS [None]
  - OPTIC NERVE DISORDER [None]
  - PYREXIA [None]
  - RETINAL OEDEMA [None]
  - EPISCLERAL HYPERAEMIA [None]
  - HYPOAESTHESIA [None]
  - LACRIMAL GLAND ENLARGEMENT [None]
  - EXOPHTHALMOS [None]
  - RETINAL DETACHMENT [None]
  - RETINAL DISORDER [None]
  - SCLERAL DISORDER [None]
  - HEADACHE [None]
  - PSEUDOENDOPHTHALMITIS [None]
  - EYE INFLAMMATION [None]
  - NAUSEA [None]
  - RED BLOOD CELL SEDIMENTATION RATE INCREASED [None]
  - LACRIMATION INCREASED [None]
  - PERIORBITAL CELLULITIS [None]
  - CORYNEBACTERIUM TEST POSITIVE [None]
